FAERS Safety Report 10272741 (Version 1)
Quarter: 2014Q2

REPORT INFORMATION
  Report Type: Spontaneous
  Country: US (occurrence: None)
  Receive Date: 20140630
  Receipt Date: 20140630
  Transmission Date: 20141212
  Serious: Yes (Hospitalization)
  Sender: FDA-Public Use
  Company Number: BD-2014-0030

PATIENT
  Age: 34 Year
  Sex: Female

DRUGS (6)
  1. METOCLOPRAMIDE (METOCLOPRAMIDE) UNKNOWN [Suspect]
     Indication: PRODUCT USED FOR UNKNOWN INDICATION
  2. ONDANSETRON (ONDANSETRON) UNKNOWN [Suspect]
     Indication: PRODUCT USED FOR UNKNOWN INDICATION
  3. CHLORPROMAZINE (CHLORPROMAZINE) [Suspect]
     Indication: PRODUCT USED FOR UNKNOWN INDICATION
  4. CLONAZEPAM (CLONAZEPAM) [Concomitant]
  5. LITHIUM (LITHIUM) [Concomitant]
  6. METHYLPHENIDATE (METHYLPHENIDATE) UNKNOWN [Concomitant]

REACTIONS (3)
  - Drug-induced liver injury [None]
  - Drug hypersensitivity [None]
  - Adverse drug reaction [None]
